FAERS Safety Report 13216084 (Version 1)
Quarter: 2017Q1

REPORT INFORMATION
  Report Type: Spontaneous
  Country: US (occurrence: US)
  Receive Date: 20170210
  Receipt Date: 20170210
  Transmission Date: 20170428
  Serious: No
  Sender: FDA-Public Use
  Company Number: US-ROCHE-1815712

PATIENT
  Age: 42 Year
  Sex: Female

DRUGS (1)
  1. XOLAIR [Suspect]
     Active Substance: OMALIZUMAB
     Indication: ASTHMA
     Route: 030
     Dates: start: 20160812, end: 20160815

REACTIONS (3)
  - Arthralgia [Unknown]
  - Headache [Unknown]
  - Sinus congestion [Unknown]

NARRATIVE: CASE EVENT DATE: 20160816
